FAERS Safety Report 7824430-0 (Version None)
Quarter: 2011Q4

REPORT INFORMATION
  Report Type: 
  Country: None (occurrence: None)
  Receive Date: 20111019
  Receipt Date: 20111013
  Transmission Date: 20120403
  Serious: Yes (Death, Other)
  Sender: FDA-Public Use
  Company Number: US-JNJFOC-20101103088

PATIENT
  Sex: Female
  Weight: 72.58 kg

DRUGS (5)
  1. THIAZIDES [Concomitant]
     Indication: HYPERTENSION
  2. DOXIL [Suspect]
     Indication: OVARIAN EPITHELIAL CANCER RECURRENT
     Dosage: UNSPECIFIED DOSE EVERY 4-7 WEEKS FOR 7 YEARS;  CUMULATIVE DOSE 1730 MG/M2
     Route: 042
     Dates: end: 20060801
  3. CARBOPLATIN [Suspect]
     Indication: OVARIAN CANCER
     Route: 065
  4. DOXIL [Suspect]
     Dosage: CUMULATIVE DOSE 1730 MG/M2 OVER 7 YEARS
     Route: 042
     Dates: start: 20071201
  5. TOPOTECAN [Suspect]
     Indication: OVARIAN CANCER
     Route: 065

REACTIONS (2)
  - OVARIAN CANCER [None]
  - RENAL FAILURE CHRONIC [None]
